FAERS Safety Report 22530908 (Version 1)
Quarter: 2023Q2

REPORT INFORMATION
  Report Type: Spontaneous
  Country: US (occurrence: US)
  Receive Date: 20230607
  Receipt Date: 20230607
  Transmission Date: 20230721
  Serious: No
  Sender: FDA-Public Use
  Company Number: US-AMNEAL PHARMACEUTICALS-2023-AMRX-00668

PATIENT
  Age: 62 Year
  Sex: Male
  Weight: 102.04 kg

DRUGS (1)
  1. DIFLUPREDNATE [Suspect]
     Active Substance: DIFLUPREDNATE
     Indication: Eye inflammation
     Dosage: 1 DROP, BID
     Route: 047
     Dates: start: 202212, end: 20230222

REACTIONS (1)
  - Blepharal pigmentation [Not Recovered/Not Resolved]

NARRATIVE: CASE EVENT DATE: 20230101
